FAERS Safety Report 6437133-4 (Version None)
Quarter: 2009Q4

REPORT INFORMATION
  Report Type: 
  Country: None (occurrence: None)
  Receive Date: 20091112
  Receipt Date: 20091014
  Transmission Date: 20100525
  Serious: Yes (Hospitalization)
  Sender: FDA-Public Use
  Company Number: JP-ASTRAZENECA-2009SE25273

PATIENT
  Age: 65 Year
  Sex: Female

DRUGS (2)
  1. OMEPRAZOLE [Suspect]
     Dates: end: 20090301
  2. LOXOPROFEN SODIUM [Concomitant]
     Dates: end: 20090301

REACTIONS (2)
  - COLITIS COLLAGENOUS [None]
  - SMALL INTESTINAL HAEMORRHAGE [None]
